FAERS Safety Report 8729529 (Version 3)
Quarter: 2012Q4

REPORT INFORMATION
  Report Type: 
  Country: US (occurrence: US)
  Receive Date: 20120817
  Receipt Date: 20120904
  Transmission Date: 20130627
  Serious: Yes (Other)
  Sender: FDA-Public Use
  Company Number: US-PFIZER INC-2012198898

PATIENT
  Age: 20 Year
  Sex: Female
  Weight: 66.7 kg

DRUGS (9)
  1. RAPAMUNE [Suspect]
     Indication: TRANSPLANT
     Dosage: 3 mg, 1x/day
     Route: 048
     Dates: end: 20110526
  2. MYCOPHENOLATE MOFETIL [Suspect]
     Indication: TRANSPLANT
     Dosage: 750 mg, 2x/day
     Route: 048
     Dates: end: 20110526
  3. TACROLIMUS [Concomitant]
     Indication: TRANSPLANT
     Dosage: 5 mg, 2x/day
     Route: 048
     Dates: end: 20110526
  4. TACROLIMUS [Concomitant]
     Dosage: 6 mg, 2x/day
     Route: 048
     Dates: start: 20110526
  5. PREDNISONE [Concomitant]
     Indication: TRANSPLANT
     Dosage: 10 mg, 1x/day
     Route: 048
     Dates: start: 20110526, end: 20110622
  6. ATORVASTATIN CALCIUM [Concomitant]
  7. LISINOPRIL [Concomitant]
  8. SULFAMETHOXAZOLE W/TRIMETHOPRIM [Concomitant]
  9. OMEPRAZOLE [Concomitant]

REACTIONS (1)
  - Abortion spontaneous [Unknown]
